FAERS Safety Report 15030273 (Version 2)
Quarter: 2018Q3

REPORT INFORMATION
  Report Type: Spontaneous
  Country: JP (occurrence: JP)
  Receive Date: 20180619
  Receipt Date: 20180830
  Transmission Date: 20181010
  Serious: Yes (Hospitalization, Other)
  Sender: FDA-Public Use
  Company Number: JP-PFIZER INC-2018247096

PATIENT
  Age: 71 Year
  Sex: Female
  Weight: 49.3 kg

DRUGS (1)
  1. CHAMPIX [Suspect]
     Active Substance: VARENICLINE TARTRATE
     Indication: SMOKING CESSATION THERAPY
     Dosage: UNK
     Route: 048
     Dates: start: 20180613, end: 20180617

REACTIONS (6)
  - Altered state of consciousness [Unknown]
  - Incontinence [Unknown]
  - Disorientation [Recovering/Resolving]
  - Thalamus haemorrhage [Unknown]
  - Embolic cerebral infarction [Unknown]
  - Muscle rigidity [Unknown]

NARRATIVE: CASE EVENT DATE: 20180616
